FAERS Safety Report 7121980-X (Version None)
Quarter: 2010Q4

REPORT INFORMATION
  Report Type: 
  Country: None (occurrence: None)
  Receive Date: 20101124
  Receipt Date: 20101117
  Transmission Date: 20110411
  Serious: Yes (Hospitalization, Congenital Anomaly)
  Sender: FDA-Public Use
  Company Number: A0871437A

PATIENT
  Sex: Female

DRUGS (5)
  1. PAXIL [Suspect]
  2. AMPICILLIN [Concomitant]
  3. DECONGESTANT [Concomitant]
  4. PRENATAL VITAMINS [Concomitant]
  5. IRON [Concomitant]

REACTIONS (10)
  - AORTIC STENOSIS [None]
  - ATRIAL SEPTAL DEFECT [None]
  - BICUSPID AORTIC VALVE [None]
  - DRUG EXPOSURE DURING PREGNANCY [None]
  - FACIAL ASYMMETRY [None]
  - FAILURE TO THRIVE [None]
  - KIDNEY MALFORMATION [None]
  - RENAL DYSPLASIA [None]
  - SINGLE FUNCTIONAL KIDNEY [None]
  - VENTRICULAR SEPTAL DEFECT [None]
